FAERS Safety Report 9065088 (Version 1)
Quarter: 2013Q1

REPORT INFORMATION
  Report Type: Report from Study
  Country: US (occurrence: US)
  Receive Date: 20130131
  Receipt Date: 20130131
  Transmission Date: 20140127
  Serious: No
  Sender: FDA-Public Use
  Company Number: US-ABBOTT-12P-163-1015494-00

PATIENT
  Age: 39 Year
  Sex: Female

DRUGS (8)
  1. HUMIRA [Suspect]
     Indication: CROHN^S DISEASE
     Dates: start: 20121109, end: 20121109
  2. TYLENOL [Concomitant]
  3. EXCEDRIN MIGRAINE [Concomitant]
  4. TRAZADONE [Concomitant]
  5. MULTIVITAMINES WITH IRON [Concomitant]
  6. CHLORTHALIDONE [Concomitant]
  7. WELLBUTRIN [Concomitant]
  8. LIALDA [Concomitant]

REACTIONS (1)
  - Headache [Recovered/Resolved]
